FAERS Safety Report 10575832 (Version 1)
Quarter: 2014Q4

REPORT INFORMATION
  Report Type: Spontaneous
  Country: US (occurrence: US)
  Receive Date: 20141111
  Receipt Date: 20141111
  Transmission Date: 20150529
  Serious: Yes (Other)
  Sender: FDA-Public Use
  Company Number: US-CIPLA LTD.-2014US01648

PATIENT

DRUGS (4)
  1. RITUXIMAB [Suspect]
     Active Substance: RITUXIMAB
     Indication: CASTLEMAN^S DISEASE
     Dosage: 375 MG/M2, EVERY 3 WEEKS
  2. VALGANCICLOVIR [Suspect]
     Active Substance: VALGANCICLOVIR
     Indication: HIV INFECTION
     Dosage: 900 MG, FOR 12 HOURS FOR 7 DAYS
     Route: 048
     Dates: start: 201006
  3. ZIDOVUDINE. [Suspect]
     Active Substance: ZIDOVUDINE
     Indication: HIV INFECTION
     Dosage: 600 MG, EVERY 6 HOURS FOR 7 DAYS
     Route: 048
     Dates: start: 201006
  4. DOXORUBICIN [Suspect]
     Active Substance: DOXORUBICIN
     Indication: CASTLEMAN^S DISEASE
     Dosage: 20 MG/M2, EVERY 3 WEEKS

REACTIONS (1)
  - Disease progression [Unknown]
